FAERS Safety Report 8299387-1 (Version None)
Quarter: 2012Q2

REPORT INFORMATION
  Report Type: 
  Country: None (occurrence: None)
  Receive Date: 20120419
  Receipt Date: 20120406
  Transmission Date: 20120825
  Serious: Yes (Hospitalization)
  Sender: FDA-Public Use
  Company Number: JP-PFIZER INC-2012085308

PATIENT
  Age: 10 Year
  Sex: Male
  Weight: 23.6 kg

DRUGS (5)
  1. EPINASTINE HYDROCHLORIDE [Concomitant]
     Indication: URTICARIA
     Dosage: 10 MG, 1X/DAY
     Route: 048
     Dates: start: 20120315
  2. VENA PASTA [Concomitant]
     Indication: URTICARIA
     Dosage: UNK
     Route: 003
     Dates: start: 20120315
  3. BANAN [Suspect]
     Indication: PHARYNGITIS
     Dosage: 130 (65 ,2 IN 1 D)
     Route: 048
     Dates: start: 20120315, end: 20120317
  4. BANAN [Suspect]
     Indication: BETA HAEMOLYTIC STREPTOCOCCAL INFECTION
  5. ENTERONON R [Concomitant]
     Dosage: 1 (0.5 ,2 IN 1 D)
     Route: 048
     Dates: start: 20120315, end: 20120317

REACTIONS (1)
  - ERYTHEMA MULTIFORME [None]
